FAERS Safety Report 24415232 (Version 1)
Quarter: 2024Q4

REPORT INFORMATION
  Report Type: Spontaneous
  Country: NL (occurrence: NL)
  Receive Date: 20241009
  Receipt Date: 20241009
  Transmission Date: 20250115
  Serious: Yes (Hospitalization, Other)
  Sender: NOVARTIS
  Company Number: None

PATIENT
  Age: 49 Year
  Sex: Female
  Weight: 60 kg

DRUGS (6)
  1. SECUKINUMAB [Suspect]
     Active Substance: SECUKINUMAB
     Indication: Systemic lupus erythematosus
     Dosage: 150 MG, Q4W
     Route: 065
     Dates: start: 20240814
  2. FLUOXETINE [Concomitant]
     Active Substance: FLUOXETINE HYDROCHLORIDE
     Indication: Product used for unknown indication
     Dosage: 60 MG
     Route: 065
  3. CELECOXIB [Concomitant]
     Active Substance: CELECOXIB
     Indication: Product used for unknown indication
     Dosage: 200 MG
     Route: 065
  4. CHOLECALCIFEROL [Concomitant]
     Active Substance: CHOLECALCIFEROL
     Indication: Product used for unknown indication
     Dosage: UNK (800 IE/UNITS)
     Route: 065
  5. OMEPRAZOLE [Concomitant]
     Active Substance: OMEPRAZOLE
     Indication: Product used for unknown indication
     Dosage: 2 MILLIGRAM PER MILLILITRE
     Route: 048
  6. FERROUS FUMARATE [Concomitant]
     Active Substance: FERROUS FUMARATE
     Indication: Product used for unknown indication
     Dosage: 200 MG
     Route: 065

REACTIONS (3)
  - Stomatitis [Recovering/Resolving]
  - Diabetes mellitus inadequate control [Recovering/Resolving]
  - Glossodynia [Recovering/Resolving]
